FAERS Safety Report 4541787-7 (Version None)
Quarter: 2004Q4

REPORT INFORMATION
  Report Type: 
  Country: None (occurrence: None)
  Receive Date: 20041227
  Receipt Date: 20041215
  Transmission Date: 20050328
  Serious: Yes (Hospitalization)
  Sender: FDA-Public Use
  Company Number: 2004UW25595

PATIENT
  Age: 58 Year
  Sex: Male

DRUGS (10)
  1. CRESTOR [Suspect]
     Dosage: 10 MG QD PO
     Route: 048
     Dates: start: 20040723, end: 20041031
  2. ASPIRIN [Concomitant]
  3. COGENTIN [Concomitant]
  4. WELLBUTRIN [Concomitant]
  5. CELEXA [Concomitant]
  6. KLONOPIN [Concomitant]
  7. CLOZARIL [Concomitant]
  8. LITHIUM CARBONATE [Concomitant]
  9. GLUCOPHAGE [Concomitant]
  10. ACTOS [Concomitant]

REACTIONS (6)
  - BLOOD GLUCOSE INCREASED [None]
  - BLOOD UREA INCREASED [None]
  - DEHYDRATION [None]
  - ORTHOSTATIC HYPOTENSION [None]
  - PNEUMONIA [None]
  - RHABDOMYOLYSIS [None]
